FAERS Safety Report 9714595 (Version 4)
Quarter: 2014Q3

REPORT INFORMATION
  Report Type: Spontaneous
  Country: CA (occurrence: None)
  Receive Date: 20131125
  Receipt Date: 20140702
  Transmission Date: 20150326
  Serious: Yes (Other)
  Sender: FDA-Public Use
  Company Number: 2013-CA-003567

PATIENT
  Age: 54 Year
  Sex: Female
  Weight: 81.6 kg

DRUGS (6)
  1. VENLAFAXINE [Concomitant]
     Active Substance: VENLAFAXINE HYDROCHLORIDE
  2. DOMPERIDONE (DOMPERIDONE) [Concomitant]
     Active Substance: DOMPERIDONE
  3. ADDERALL (AMFETAMINE ASPARTATE, AMFETAMINE SULFATE, DEXAMFETAMINE SACCHARATE, DEXAMFETAMINE SULFATE) [Concomitant]
  4. CLOMIPRAMINE (CLOMIPRAMINE HYDROCHLORIDE) [Concomitant]
  5. XYREM [Suspect]
     Active Substance: SODIUM OXYBATE
     Indication: CATAPLEXY
     Route: 048
     Dates: start: 20130104, end: 2013
  6. RITALIN [Concomitant]
     Active Substance: METHYLPHENIDATE HYDROCHLORIDE

REACTIONS (24)
  - Somnolence [None]
  - Fatigue [None]
  - Increased appetite [None]
  - Disturbance in attention [None]
  - Brain operation [None]
  - Drug dose omission [None]
  - Brain neoplasm benign [None]
  - Malaise [None]
  - Amnesia [None]
  - Pruritus [None]
  - Dyspnoea [None]
  - Neoplasm progression [None]
  - Decreased activity [None]
  - Musculoskeletal discomfort [None]
  - Peripheral swelling [None]
  - Weight increased [None]
  - Petechiae [None]
  - Paraesthesia [None]
  - Anxiety [None]
  - Hepatomegaly [None]
  - Incision site swelling [None]
  - Stress [None]
  - Dyspepsia [None]
  - Scab [None]

NARRATIVE: CASE EVENT DATE: 2013
